FAERS Safety Report 9677443 (Version 1)
Quarter: 2013Q4

REPORT INFORMATION
  Report Type: Spontaneous
  Country: US (occurrence: US)
  Receive Date: 20131108
  Receipt Date: 20131108
  Transmission Date: 20140711
  Serious: No
  Sender: FDA-Public Use
  Company Number: US-ENDO PHARMACEUTICALS INC.-PRED20120073

PATIENT
  Sex: Male

DRUGS (4)
  1. PREDNISONE TABLETS 1MG [Suspect]
     Route: 048
     Dates: start: 20121209
  2. PREDNISONE TABLETS 1MG [Suspect]
     Indication: PRODUCT USED FOR UNKNOWN INDICATION
     Route: 048
  3. PREDNISONE TABLETS 1MG [Suspect]
     Route: 048
  4. PREDNISONE TABLETS 1MG [Suspect]
     Route: 048
     Dates: start: 20121208

REACTIONS (5)
  - Musculoskeletal pain [Not Recovered/Not Resolved]
  - Abdominal pain upper [Not Recovered/Not Resolved]
  - Myalgia [Not Recovered/Not Resolved]
  - Arthralgia [Not Recovered/Not Resolved]
  - Urine flow decreased [Recovering/Resolving]
